FAERS Safety Report 7784500-2 (Version None)
Quarter: 2011Q3

REPORT INFORMATION
  Report Type: 
  Country: None (occurrence: None)
  Receive Date: 20110928
  Receipt Date: 20110915
  Transmission Date: 20111222
  Serious: Yes (Other)
  Sender: FDA-Public Use
  Company Number: US-JNJFOC-20110908278

PATIENT
  Age: 47 Year
  Sex: Female
  Weight: 56.25 kg

DRUGS (1)
  1. LISTERINE TOTAL CARE ANTICAVITY MOUTHWASH [Suspect]
     Indication: DENTAL DISORDER PROPHYLAXIS
     Dosage: HALF CAP, ONCE
     Route: 048

REACTIONS (2)
  - ORAL MUCOSAL EXFOLIATION [None]
  - APPLICATION SITE BURN [None]
